FAERS Safety Report 13784149 (Version 19)
Quarter: 2019Q4

REPORT INFORMATION
  Report Type: Report from Study
  Country: US (occurrence: US)
  Receive Date: 20170724
  Receipt Date: 20191031
  Transmission Date: 20200122
  Serious: Yes (Other)
  Sender: FDA-Public Use
  Company Number: US-JAZZ-2017-US-008475

PATIENT
  Age: 61 Year
  Sex: Female

DRUGS (38)
  1. XYREM [Suspect]
     Active Substance: SODIUM OXYBATE
     Indication: NARCOLEPSY
     Dosage: 2.25 G, BID
     Route: 048
     Dates: start: 201203, end: 201203
  2. XYREM [Suspect]
     Active Substance: SODIUM OXYBATE
     Dosage: 4.5 G, BID
     Route: 048
     Dates: start: 2017
  3. XYREM [Suspect]
     Active Substance: SODIUM OXYBATE
     Dosage: 3.75 G, BID
     Route: 048
     Dates: start: 20170908
  4. RITALIN [Suspect]
     Active Substance: METHYLPHENIDATE HYDROCHLORIDE
     Indication: SOMNOLENCE
     Dosage: UNK
  5. SUNOSI [Concomitant]
     Active Substance: SOLRIAMFETOL
     Dosage: UNK
     Route: 048
     Dates: start: 201203, end: 201204
  6. SUNOSI [Concomitant]
     Active Substance: SOLRIAMFETOL
     Dosage: UNK
  7. VITAMIN D3 [Concomitant]
     Active Substance: CHOLECALCIFEROL
  8. ALEVE [Concomitant]
     Active Substance: NAPROXEN SODIUM
  9. CALCIUM + VIT D [Concomitant]
     Active Substance: CALCIUM\VITAMIN D
  10. XYREM [Suspect]
     Active Substance: SODIUM OXYBATE
     Dosage: DOSE ADJUSTMENTS
     Route: 048
     Dates: start: 201203, end: 201204
  11. STRATTERA [Suspect]
     Active Substance: ATOMOXETINE HYDROCHLORIDE
     Indication: SOMNOLENCE
  12. SUNOSI [Concomitant]
     Active Substance: SOLRIAMFETOL
     Dosage: 4.5G, BID
     Route: 048
     Dates: start: 201204, end: 201512
  13. FLAXSEED [Concomitant]
     Active Substance: FLAX SEED
  14. KRILL OIL [Concomitant]
     Active Substance: DIETARY SUPPLEMENT\KRILL OIL
  15. FEMHRT [Concomitant]
     Active Substance: ETHINYL ESTRADIOL\NORETHINDRONE ACETATE
  16. XYREM [Suspect]
     Active Substance: SODIUM OXYBATE
     Dosage: 4 G, BID
     Route: 048
  17. NUVIGIL [Suspect]
     Active Substance: ARMODAFINIL
     Indication: SOMNOLENCE
     Dosage: UNK
  18. ADDERALL [Suspect]
     Active Substance: AMPHETAMINE ASPARTATE\AMPHETAMINE SULFATE\DEXTROAMPHETAMINE SACCHARATE\DEXTROAMPHETAMINE SULFATE
     Indication: SOMNOLENCE
     Dosage: UNK
  19. SUNOSI [Concomitant]
     Active Substance: SOLRIAMFETOL
     Dosage: 2.25G, BID
     Route: 048
     Dates: start: 201203, end: 201203
  20. PYRIDIUM [Concomitant]
     Active Substance: PHENAZOPYRIDINE
  21. XYREM [Suspect]
     Active Substance: SODIUM OXYBATE
     Dosage: 4.5 G, BID
     Route: 048
     Dates: start: 201204, end: 201512
  22. ERYTHROMYCIN. [Concomitant]
     Active Substance: ERYTHROMYCIN
  23. MAGNESIUM MALATE. [Concomitant]
     Active Substance: MAGNESIUM MALATE
  24. RETINOL [Concomitant]
     Active Substance: RETINOL
  25. CEFALEXIN [Concomitant]
     Active Substance: CEPHALEXIN
  26. ASCORBIC ACID. [Concomitant]
     Active Substance: ASCORBIC ACID
  27. XYREM [Suspect]
     Active Substance: SODIUM OXYBATE
     Dosage: 3.75 G, BID
     Route: 048
     Dates: start: 201707, end: 2017
  28. ZINC. [Concomitant]
     Active Substance: ZINC
  29. BONIVA [Concomitant]
     Active Substance: IBANDRONATE SODIUM
  30. SUNOSI [Concomitant]
     Active Substance: SOLRIAMFETOL
     Dosage: 3.75G, BID
     Route: 048
     Dates: start: 201709
  31. TOCOPHEROL [Concomitant]
     Active Substance: TOCOPHEROL
  32. XYREM [Suspect]
     Active Substance: SODIUM OXYBATE
     Dosage: 3 G, TID
     Route: 048
  33. SUNOSI [Concomitant]
     Active Substance: SOLRIAMFETOL
     Dosage: 4.5G, BID
     Route: 048
     Dates: start: 2017, end: 201709
  34. XANAX [Concomitant]
     Active Substance: ALPRAZOLAM
  35. NORCO [Concomitant]
     Active Substance: ACETAMINOPHEN\HYDROCODONE BITARTRATE
  36. XYREM [Suspect]
     Active Substance: SODIUM OXYBATE
     Dosage: 4.5 G, BID
     Route: 048
  37. NUVIGIL [Suspect]
     Active Substance: ARMODAFINIL
     Dosage: UNK
  38. SUNOSI [Concomitant]
     Active Substance: SOLRIAMFETOL
     Dosage: 3.75G, BID
     Route: 048
     Dates: start: 2017, end: 2017

REACTIONS (30)
  - Abnormal faeces [Not Recovered/Not Resolved]
  - Back pain [Recovered/Resolved]
  - Depression [Unknown]
  - Stress [Unknown]
  - Sinus disorder [Unknown]
  - Tardive dyskinesia [Not Recovered/Not Resolved]
  - Acne [Unknown]
  - Paraesthesia [Not Recovered/Not Resolved]
  - Muscle spasms [Unknown]
  - Fatigue [Not Recovered/Not Resolved]
  - Confusional state [Not Recovered/Not Resolved]
  - Tachycardia [Recovered/Resolved]
  - Dehydration [Unknown]
  - Hypnagogic hallucination [Unknown]
  - Hypertension [Unknown]
  - Dizziness [Unknown]
  - Sedation [Unknown]
  - Feeling drunk [Unknown]
  - Agitation [Not Recovered/Not Resolved]
  - Hyperhidrosis [Unknown]
  - Feeling jittery [Not Recovered/Not Resolved]
  - Diarrhoea [Not Recovered/Not Resolved]
  - Wrong technique in product usage process [Unknown]
  - Arthritis [Recovering/Resolving]
  - Drug ineffective [Unknown]
  - Restlessness [Unknown]
  - Feeling abnormal [Unknown]
  - Libido decreased [Unknown]
  - Headache [Unknown]
  - Tremor [Not Recovered/Not Resolved]

NARRATIVE: CASE EVENT DATE: 201203
